FAERS Safety Report 9677412 (Version 1)
Quarter: 2013Q4

REPORT INFORMATION
  Report Type: Spontaneous
  Country: US (occurrence: US)
  Receive Date: 20131108
  Receipt Date: 20131108
  Transmission Date: 20140711
  Serious: No
  Sender: FDA-Public Use
  Company Number: US-ENDO PHARMACEUTICALS INC.-PHEN20120009

PATIENT
  Sex: Female
  Weight: 59.02 kg

DRUGS (1)
  1. PHENTERMINE HCL TABLETS [Suspect]
     Indication: WEIGHT CONTROL
     Route: 048
     Dates: start: 201207, end: 2012

REACTIONS (3)
  - Fatigue [Recovering/Resolving]
  - Acne [Recovering/Resolving]
  - Therapeutic response unexpected [Recovered/Resolved]
